FAERS Safety Report 4521027-5 (Version None)
Quarter: 2004Q4

REPORT INFORMATION
  Report Type: 
  Country: None (occurrence: None)
  Receive Date: 20041208
  Receipt Date: 20041202
  Transmission Date: 20050328
  Serious: Yes (Death, Life-Threatening)
  Sender: FDA-Public Use
  Company Number: 200414533FR

PATIENT
  Age: 66 Year
  Sex: Male

DRUGS (3)
  1. LOVENOX [Suspect]
     Indication: THROMBOPHLEBITIS
     Route: 058
     Dates: start: 20040922, end: 20040927
  2. CARBOPLATINE [Concomitant]
     Indication: CARCINOMA
     Dates: start: 20040921, end: 20040921
  3. VEPESID [Concomitant]
     Indication: LUNG NEOPLASM MALIGNANT
     Dates: start: 20040921, end: 20040921

REACTIONS (2)
  - RESPIRATORY DISTRESS [None]
  - THROMBOCYTOPENIA [None]
